FAERS Safety Report 25962299 (Version 1)
Quarter: 2025Q4

REPORT INFORMATION
  Report Type: Spontaneous
  Country: EU (occurrence: EU)
  Receive Date: 20251027
  Receipt Date: 20251027
  Transmission Date: 20260117
  Serious: Yes (Other)
  Sender: SANOFI AVENTIS
  Company Number: EU-SA-2021SA072595

PATIENT
  Age: 58 Year
  Sex: Male

DRUGS (9)
  1. CISPLATIN [Suspect]
     Active Substance: CISPLATIN
     Indication: Lung adenocarcinoma stage IV
     Dosage: UNK QCY
     Dates: start: 201612, end: 201704
  2. CISPLATIN [Suspect]
     Active Substance: CISPLATIN
     Indication: Metastases to bone
  3. DOCETAXEL [Suspect]
     Active Substance: DOCETAXEL
     Indication: Non-small cell lung cancer
     Dosage: UNK  QCY
     Dates: start: 201812, end: 201812
  4. DOCETAXEL [Suspect]
     Active Substance: DOCETAXEL
     Dosage: UNK, QCY
     Dates: start: 202001, end: 202001
  5. NINTEDANIB [Suspect]
     Active Substance: NINTEDANIB
     Indication: Non-small cell lung cancer
     Dosage: UNK, QCY
     Dates: start: 201812, end: 201812
  6. NINTEDANIB [Suspect]
     Active Substance: NINTEDANIB
     Dosage: UNK, QCY
     Dates: start: 202001, end: 202001
  7. PEMETREXED [Suspect]
     Active Substance: PEMETREXED
     Indication: Lung adenocarcinoma stage IV
     Dosage: UNK QCY
     Dates: start: 201612, end: 201704
  8. PEMETREXED [Suspect]
     Active Substance: PEMETREXED
     Indication: Metastases to bone
  9. GEMCITABINE [Suspect]
     Active Substance: GEMCITABINE
     Indication: Non-small cell lung cancer
     Dosage: 1000 MG/M2, QCY ON DAYS 1, 8, 15, I.E. EVERY 28 DAYS
     Dates: start: 202002, end: 202003

REACTIONS (6)
  - Nephropathy toxic [Unknown]
  - Thrombocytopenia [Unknown]
  - Neutropenia [Unknown]
  - Transaminases increased [Unknown]
  - Blood pressure increased [Recovered/Resolved]
  - Upper respiratory tract infection [Unknown]

NARRATIVE: CASE EVENT DATE: 20200101
